FAERS Safety Report 14338995 (Version 1)
Quarter: 2017Q4

REPORT INFORMATION
  Report Type: Spontaneous
  Country: US (occurrence: US)
  Receive Date: 20171230
  Receipt Date: 20171230
  Transmission Date: 20180321
  Serious: No
  Sender: FDA-Public Use
  Company Number: US-BIOGEN-2017BI00502013

PATIENT
  Age: 44 Year
  Sex: Female

DRUGS (1)
  1. TECFIDERA [Suspect]
     Active Substance: DIMETHYL FUMARATE
     Indication: MULTIPLE SCLEROSIS
     Route: 065

REACTIONS (8)
  - Asthenia [Unknown]
  - Crying [Unknown]
  - Flushing [Unknown]
  - Malaise [Unknown]
  - Hypersensitivity [Unknown]
  - Pain [Unknown]
  - Influenza like illness [Unknown]
  - Depression [Unknown]
